FAERS Safety Report 8844592 (Version 2)
Quarter: 2012Q4

REPORT INFORMATION
  Report Type: 
  Country: FR (occurrence: FR)
  Receive Date: 20121017
  Receipt Date: 20121106
  Transmission Date: 20130627
  Serious: Yes (Other)
  Sender: FDA-Public Use
  Company Number: FR-BAYER-2011-087921

PATIENT
  Age: 52 Year
  Sex: Female

DRUGS (7)
  1. BETAFERON [Suspect]
     Indication: MULTIPLE SCLEROSIS
     Dosage: UNK
     Route: 058
     Dates: start: 2006, end: 201206
  2. GABAPENTIN [Concomitant]
  3. RIVOTRIL [Concomitant]
  4. NEURONTIN [Concomitant]
  5. LEVOTHYROX [Concomitant]
     Indication: HYPOTHYROIDISM
     Dosage: 1 DF, QD
     Route: 048
     Dates: start: 2010
  6. ABUFENE [Concomitant]
     Indication: MENOPAUSE
     Dosage: 400 mg, UNK
     Dates: start: 201109
  7. ABUFENE [Concomitant]
     Indication: HOT FLUSHES

REACTIONS (2)
  - Rash [Recovered/Resolved]
  - Systemic lupus erythematosus [Recovered/Resolved]
